FAERS Safety Report 12036951 (Version 2)
Quarter: 2016Q1

REPORT INFORMATION
  Report Type: Spontaneous
  Country: US (occurrence: US)
  Receive Date: 20160208
  Receipt Date: 20160219
  Transmission Date: 20160526
  Serious: Yes (Other)
  Sender: FDA-Public Use
  Company Number: US-009507513-1602USA003387

PATIENT
  Age: 21 Year
  Sex: Female
  Weight: 125.62 kg

DRUGS (1)
  1. NEXPLANON [Suspect]
     Active Substance: ETONOGESTREL
     Dosage: LEFT ARM
     Route: 059
     Dates: start: 20140430, end: 20150602

REACTIONS (6)
  - Erythema [Unknown]
  - Surgery [Unknown]
  - Erythema [Unknown]
  - Tenderness [Unknown]
  - Implant site cellulitis [Unknown]
  - Tenderness [Unknown]

NARRATIVE: CASE EVENT DATE: 2014
